FAERS Safety Report 24605718 (Version 1)
Quarter: 2024Q4

REPORT INFORMATION
  Report Type: Spontaneous
  Country: TW (occurrence: TW)
  Receive Date: 20241111
  Receipt Date: 20241111
  Transmission Date: 20250114
  Serious: Yes (Other)
  Sender: MERCK
  Company Number: TW-009507513-2411TWN002354

PATIENT
  Age: 55 Year
  Sex: Male

DRUGS (1)
  1. PEMBROLIZUMAB [Suspect]
     Active Substance: PEMBROLIZUMAB
     Indication: Transitional cell carcinoma metastatic
     Dosage: 200 MILLIGRAM, Q3W

REACTIONS (3)
  - Lymphangioma [Unknown]
  - Lymphadenectomy [Unknown]
  - Nephrectomy [Unknown]
